FAERS Safety Report 5775030-8 (Version None)
Quarter: 2008Q2

REPORT INFORMATION
  Report Type: 
  Country: None (occurrence: None)
  Receive Date: 20080612
  Receipt Date: 20080529
  Transmission Date: 20081010
  Serious: Yes (Death, Hospitalization)
  Sender: FDA-Public Use
  Company Number: 2008AL006015

PATIENT
  Age: 66 Year
  Sex: Male
  Weight: 29.4838 kg

DRUGS (5)
  1. DIGOXIN [Suspect]
     Indication: ATRIAL FIBRILLATION
     Dosage: .25 MG QD PO
     Route: 048
  2. COUMADIN [Suspect]
  3. COUMADIN [Concomitant]
  4. LASIX [Concomitant]
  5. LININOPRIL [Concomitant]

REACTIONS (3)
  - DRUG LEVEL DECREASED [None]
  - INTERNATIONAL NORMALISED RATIO INCREASED [None]
  - STAPHYLOCOCCAL INFECTION [None]
